FAERS Safety Report 9554685 (Version 1)
Quarter: 2013Q3

REPORT INFORMATION
  Report Type: Spontaneous
  Country: KR (occurrence: KR)
  Receive Date: 20130926
  Receipt Date: 20130926
  Transmission Date: 20140515
  Serious: Yes (Hospitalization, Other)
  Sender: FDA-Public Use
  Company Number: KR-BAXTER-2013BAX036667

PATIENT
  Age: 72 Year
  Sex: Female

DRUGS (5)
  1. ENDOXAN INJ 500MG [Suspect]
     Indication: EPSTEIN-BARR VIRUS ASSOCIATED LYMPHOMA
     Route: 065
     Dates: start: 200912, end: 201004
  2. RITUXIMAB [Suspect]
     Indication: EPSTEIN-BARR VIRUS ASSOCIATED LYMPHOMA
     Route: 065
     Dates: start: 200912, end: 201004
  3. DOXORUBICIN [Suspect]
     Indication: EPSTEIN-BARR VIRUS ASSOCIATED LYMPHOMA
     Route: 065
     Dates: start: 200912, end: 201004
  4. VINCRISTINE [Suspect]
     Indication: EPSTEIN-BARR VIRUS ASSOCIATED LYMPHOMA
     Route: 065
     Dates: start: 200912, end: 201004
  5. PREDNISOLONE [Suspect]
     Indication: EPSTEIN-BARR VIRUS ASSOCIATED LYMPHOMA
     Route: 065
     Dates: start: 200912, end: 201004

REACTIONS (5)
  - Febrile neutropenia [Unknown]
  - Pneumocystis jirovecii pneumonia [Unknown]
  - Herpes zoster [Unknown]
  - Pneumonia [Unknown]
  - Angioimmunoblastic T-cell lymphoma [Unknown]
